FAERS Safety Report 5277725-1 (Version None)
Quarter: 2007Q1

REPORT INFORMATION
  Report Type: 
  Country: None (occurrence: None)
  Receive Date: 20070321
  Receipt Date: 20070309
  Transmission Date: 20070707
  Serious: Yes (Hospitalization, Other)
  Sender: FDA-Public Use
  Company Number: 2007RR-06299

PATIENT
  Age: 47 Year
  Sex: Female

DRUGS (2)
  1. DILTIAZEM [Suspect]
     Indication: HYPERTENSION
  2. CEPHALEXIN [Suspect]
     Indication: RASH PUSTULAR

REACTIONS (2)
  - ACUTE GENERALISED EXANTHEMATOUS PUSTULOSIS [None]
  - SKIN HYPERPIGMENTATION [None]
